FAERS Safety Report 23648550 (Version 1)
Quarter: 2024Q1

REPORT INFORMATION
  Report Type: Spontaneous
  Country: CN (occurrence: CN)
  Receive Date: 20240319
  Receipt Date: 20240319
  Transmission Date: 20240410
  Serious: Yes (Hospitalization)
  Sender: FDA-Public Use
  Company Number: CN-PFIZER INC-PV202400036138

PATIENT
  Age: 43 Year
  Sex: Male
  Weight: 61 kg

DRUGS (8)
  1. VFEND [Suspect]
     Active Substance: VORICONAZOLE
     Indication: Fungal peritonitis
     Dosage: 0.2 G, 2X/DAY
     Route: 048
     Dates: start: 20231102, end: 20240312
  2. VFEND [Suspect]
     Active Substance: VORICONAZOLE
     Indication: Renal failure
  3. VFEND [Suspect]
     Active Substance: VORICONAZOLE
     Indication: Haemodialysis
  4. VFEND [Suspect]
     Active Substance: VORICONAZOLE
     Indication: Nephrogenic anaemia
  5. VFEND [Suspect]
     Active Substance: VORICONAZOLE
     Indication: Hypertension
  6. VFEND [Suspect]
     Active Substance: VORICONAZOLE
     Indication: Kidney transplant rejection
  7. VFEND [Suspect]
     Active Substance: VORICONAZOLE
     Indication: Hyperkalaemia
  8. VFEND [Suspect]
     Active Substance: VORICONAZOLE
     Indication: Aspergillus infection

REACTIONS (4)
  - Visual impairment [Recovering/Resolving]
  - Eye pain [Recovering/Resolving]
  - Eye swelling [Recovering/Resolving]
  - Diplopia [Recovering/Resolving]
